FAERS Safety Report 6994087-X (Version None)
Quarter: 2010Q3

REPORT INFORMATION
  Report Type: 
  Country: None (occurrence: None)
  Receive Date: 20100917
  Receipt Date: 20100701
  Transmission Date: 20110219
  Serious: No
  Sender: FDA-Public Use
  Company Number: US-ASTRAZENECA-2007UW16480

PATIENT
  Age: 16853 Day
  Sex: Male
  Weight: 81.6 kg

DRUGS (9)
  1. SEROQUEL [Suspect]
     Indication: INSOMNIA
     Dosage: 100-600 MG DAILY
     Route: 048
     Dates: start: 20030206
  2. SEROQUEL [Suspect]
     Route: 048
     Dates: start: 20030206, end: 20030527
  3. SEROQUEL [Suspect]
     Route: 048
     Dates: start: 20030501, end: 20050223
  4. HALDOL [Concomitant]
  5. LEXAPRO [Concomitant]
     Dosage: 10-20 MG DAILY
     Route: 048
     Dates: start: 20030429
  6. DIAZEPAM [Concomitant]
     Dosage: 10-15 MG DAILY
     Route: 048
     Dates: start: 20030429
  7. RISPERDAL [Concomitant]
     Dates: start: 20040331, end: 20040420
  8. ZYPREXA [Concomitant]
     Dates: start: 20030710, end: 20031217
  9. LIPITOR [Concomitant]
     Indication: BLOOD TRIGLYCERIDES INCREASED

REACTIONS (3)
  - DIABETES MELLITUS [None]
  - OBESITY [None]
  - TYPE 2 DIABETES MELLITUS [None]
